FAERS Safety Report 20585636 (Version 7)
Quarter: 2022Q3

REPORT INFORMATION
  Report Type: Report from Study
  Country: MX (occurrence: MX)
  Receive Date: 20220312
  Receipt Date: 20220721
  Transmission Date: 20221027
  Serious: Yes (Other)
  Sender: FDA-Public Use
  Company Number: MX-NOVARTISPH-NVSC2022MX058101

PATIENT
  Age: 98 Year
  Sex: Female
  Weight: 55 kg

DRUGS (6)
  1. ENTRESTO [Suspect]
     Active Substance: SACUBITRIL\VALSARTAN
     Indication: Blood pressure abnormal
     Dosage: 1 DOSAGE FORM, BID
     Route: 048
  2. ENTRESTO [Suspect]
     Active Substance: SACUBITRIL\VALSARTAN
     Indication: Cardiac disorder
     Dosage: 1 DOSAGE FORM, BID (50 MG) (START DATE- JAN 2022 OR FEB 2022)
     Route: 048
     Dates: start: 202201
  3. ENTRESTO [Suspect]
     Active Substance: SACUBITRIL\VALSARTAN
     Indication: Cardiac failure
     Dosage: 1 DOSAGE FORM, BID (200MG)
     Route: 048
     Dates: start: 202202
  4. ENTRESTO [Suspect]
     Active Substance: SACUBITRIL\VALSARTAN
     Dosage: 1 DOSAGE FORM, Q12H (200 MG)
     Route: 048
  5. ENTRESTO [Suspect]
     Active Substance: SACUBITRIL\VALSARTAN
     Dosage: 1 DOSAGE FORM, Q12H (200 MG)
     Route: 048
     Dates: start: 202201, end: 20220628
  6. AMLODIPINE [Concomitant]
     Active Substance: AMLODIPINE BESYLATE
     Indication: Hypertension
     Dosage: 1 DOSAGE FORM, QD (STARTED LONG TIME AGO)
     Route: 048

REACTIONS (31)
  - Glaucoma [Unknown]
  - Blindness [Unknown]
  - Femur fracture [Unknown]
  - Hypoacusis [Unknown]
  - Abdominal pain upper [Unknown]
  - Nasal disorder [Recovering/Resolving]
  - Catarrh [Recovering/Resolving]
  - Dyspepsia [Unknown]
  - Anger [Unknown]
  - Eating disorder [Unknown]
  - Vomiting [Recovering/Resolving]
  - Infection [Unknown]
  - Heart rate decreased [Not Recovered/Not Resolved]
  - Night sweats [Not Recovered/Not Resolved]
  - Anxiety [Unknown]
  - Fatigue [Not Recovered/Not Resolved]
  - General physical health deterioration [Recovered/Resolved]
  - Blood pressure systolic increased [Unknown]
  - Oxygen saturation decreased [Unknown]
  - Rales [Unknown]
  - Swelling [Recovering/Resolving]
  - Cough [Recovering/Resolving]
  - Stress [Unknown]
  - Blood pressure diastolic decreased [Unknown]
  - Diarrhoea [Recovering/Resolving]
  - Pruritus [Unknown]
  - Irritability [Unknown]
  - Nasopharyngitis [Unknown]
  - Sleep disorder [Unknown]
  - Tooth loss [Unknown]
  - Off label use [Not Recovered/Not Resolved]

NARRATIVE: CASE EVENT DATE: 20220201
